FAERS Safety Report 10146240 (Version 1)
Quarter: 2014Q2

REPORT INFORMATION
  Report Type: Spontaneous
  Country: US (occurrence: US)
  Receive Date: 20140501
  Receipt Date: 20140501
  Transmission Date: 20141212
  Serious: Yes (Other)
  Sender: FDA-Public Use
  Company Number: US-ELI_LILLY_AND_COMPANY-US201404006953

PATIENT
  Sex: Female

DRUGS (21)
  1. HUMALOG LISPRO [Suspect]
     Indication: DIABETES MELLITUS
     Dosage: 11 U, PRN
     Route: 065
  2. HUMALOG LISPRO [Suspect]
     Route: 065
  3. LANTUS [Concomitant]
     Dosage: UNK, BID
  4. MECLIZINE HCL [Concomitant]
     Indication: DIZZINESS
     Dosage: 2 DF, QD
  5. GABAPENTIN [Concomitant]
     Dosage: 2 DF, BID
  6. VITAMIN D3 [Concomitant]
     Dosage: 200 U, QD
     Route: 048
  7. CALTRATE                           /00751519/ [Concomitant]
  8. COUMADIN                           /00014802/ [Concomitant]
     Dosage: 1 DF, QD
  9. PLAVIX [Concomitant]
     Dosage: 75 MG, QD
  10. ZANTAC [Concomitant]
     Dosage: 1 DF, BID
  11. TOLTERODINE [Concomitant]
     Indication: BLADDER DISORDER
     Dosage: 2 DF, BID
  12. PRAVASTATIN [Concomitant]
     Indication: BLOOD CHOLESTEROL
     Dosage: 1 DF, QD
  13. TRAMADOL [Concomitant]
  14. HYDROCODONE                        /00060002/ [Concomitant]
     Dosage: 2 DF, QID
     Route: 048
  15. LISINOPRIL [Concomitant]
     Dosage: 1 DF, QD
  16. DIGOXIN [Concomitant]
     Dosage: 1 DF, QD
  17. POTASSIUM CHLORIDE [Concomitant]
     Dosage: 1 DF, QD
  18. FUROSEMIDE [Concomitant]
     Dosage: 40 MG, QD
  19. FOSAMAX [Concomitant]
     Dosage: 1 DF, WEEKLY (1/W)
  20. PRAMIPEXOLE DIHYDROCHLORIDE [Concomitant]
     Indication: RESTLESS LEGS SYNDROME
  21. AMBIEN [Concomitant]
     Dosage: 10 MG, EACH EVENING

REACTIONS (3)
  - Teeth brittle [Unknown]
  - Hypogeusia [Unknown]
  - Blood glucose abnormal [Unknown]
